FAERS Safety Report 8032181-5 (Version None)
Quarter: 2012Q1

REPORT INFORMATION
  Report Type: 
  Country: None (occurrence: None)
  Receive Date: 20120110
  Receipt Date: 20120102
  Transmission Date: 20120608
  Serious: Yes (Hospitalization, Other)
  Sender: FDA-Public Use
  Company Number: US-BIOGENIDEC-201328

PATIENT
  Age: 48 Year
  Sex: Female

DRUGS (11)
  1. MELATONIN [Concomitant]
  2. AVONEX [Suspect]
     Route: 030
     Dates: start: 20030901
  3. NAPRELAN [Concomitant]
     Indication: PROPHYLAXIS
  4. XANAX [Concomitant]
  5. SACRO-B [Concomitant]
  6. AVONEX [Suspect]
     Indication: MULTIPLE SCLEROSIS
     Route: 030
     Dates: start: 20080201, end: 20111201
  7. CAL-MAG CITRATE [Concomitant]
  8. EPA (EICOSAPENTAENOIC ACID) [Concomitant]
  9. GREEN TEA EXTRACT [Concomitant]
  10. AVONEX [Suspect]
     Route: 030
     Dates: start: 20040701, end: 20041201
  11. L-CARNITINE [Concomitant]

REACTIONS (4)
  - RASH GENERALISED [None]
  - THYROID DISORDER [None]
  - BREAST CANCER METASTATIC [None]
  - COLON CANCER [None]
